FAERS Safety Report 7720073-8 (Version None)
Quarter: 2011Q3

REPORT INFORMATION
  Report Type: 
  Country: None (occurrence: None)
  Receive Date: 20110824
  Receipt Date: 20110816
  Transmission Date: 20111222
  Serious: Yes (Other)
  Sender: FDA-Public Use
  Company Number: AUR-APL-2011-04683

PATIENT
  Age: 61 Year
  Sex: Female
  Weight: 79.59 kg

DRUGS (11)
  1. FLOXACILLIN SODIUM [Concomitant]
  2. AMOXICILLIN [Concomitant]
  3. CARMELLOSE SODIUM (CARMELLOSE SODIUM) [Concomitant]
  4. RANITIDINE [Suspect]
     Indication: PRODUCT USED FOR UNKNOWN INDICATION
     Dates: start: 20110524
  5. MIGRALEVE (PANADEINE CO) [Concomitant]
  6. PROPRANOLOL [Concomitant]
  7. ATORVASTATIN [Concomitant]
  8. OMEPRAZOLE [Concomitant]
  9. SODIUM ALGINATE (SODIUM ALGINATE) [Concomitant]
  10. LUMIGAN [Concomitant]
  11. OTOSPORIN (OTOSPORIN) [Concomitant]

REACTIONS (2)
  - INTRAOCULAR PRESSURE INCREASED [None]
  - VISION BLURRED [None]
